FAERS Safety Report 5048861-X (Version None)
Quarter: 2006Q2

REPORT INFORMATION
  Report Type: 
  Country: None (occurrence: None)
  Receive Date: 20060601
  Receipt Date: 20060418
  Transmission Date: 20061013
  Serious: No
  Sender: FDA-Public Use
  Company Number: US200603000846

PATIENT
  Age: 50 Year
  Sex: Female

DRUGS (6)
  1. CYMBALTA [Suspect]
     Indication: DEPRESSION
     Dosage: 30 MG, DAILY (1/D)
     Dates: start: 20051020, end: 20060202
  2. IBANDRONATE SODIUM (IBANDRONATE SODIUM) [Concomitant]
  3. PROGESTERONE (PROGESTERONE UNKNOWN FORMULATION) UNKNOWN [Concomitant]
  4. VITAMIN B COMPLEX (CALCIUM PANTOTHENATE, NICOTINAMIDE, PYRIDOXINE, HYD [Concomitant]
  5. MULTIVITAMIN ^LAPPE^ (VITAMINS NOS) [Concomitant]
  6. PREMARIN [Concomitant]

REACTIONS (4)
  - AGGRESSION [None]
  - BLOOD PRESSURE INCREASED [None]
  - MANIA [None]
  - WEIGHT DECREASED [None]
